FAERS Safety Report 5648348-7 (Version None)
Quarter: 2008Q1

REPORT INFORMATION
  Report Type: 
  Country: None (occurrence: None)
  Receive Date: 20080304
  Receipt Date: 20080226
  Transmission Date: 20080703
  Serious: Yes (Hospitalization, Disabling)
  Sender: FDA-Public Use
  Company Number: GB-TEVA-168071ISR

PATIENT
  Age: 66 Year
  Sex: Female

DRUGS (2)
  1. ENALAPRIL MALEATE [Suspect]
     Indication: HYPERTENSION
     Route: 048
     Dates: start: 20061110, end: 20061212
  2. ENALAPRIL MALEATE [Suspect]
     Route: 048
     Dates: start: 20061013

REACTIONS (1)
  - MANIA [None]
